FAERS Safety Report 11786811 (Version 1)
Quarter: 2015Q4

REPORT INFORMATION
  Report Type: Spontaneous
  Country: US (occurrence: US)
  Receive Date: 20151130
  Receipt Date: 20151130
  Transmission Date: 20160305
  Serious: No
  Sender: FDA-Public Use
  Company Number: US-BAYER-2015-475933

PATIENT
  Age: 40 Year
  Sex: Female

DRUGS (8)
  1. ALEVE [Suspect]
     Active Substance: NAPROXEN SODIUM
     Dosage: UNK UNK, BID
  2. METOPROLOL [Concomitant]
     Active Substance: METOPROLOL
  3. GABAPENTIN. [Concomitant]
     Active Substance: GABAPENTIN
  4. PROTONIX [Suspect]
     Active Substance: PANTOPRAZOLE SODIUM
     Dosage: UNK
  5. TUMS [CALCIUM CARBONATE,MAGNESIUM CARBONATE] [Suspect]
     Active Substance: CALCIUM CARBONATE\MAGNESIUM CARBONATE
     Dosage: UNK
  6. FAMOTIDINE. [Suspect]
     Active Substance: FAMOTIDINE
     Indication: ULCER
     Dosage: UNK
  7. PREVACID [Suspect]
     Active Substance: LANSOPRAZOLE
  8. EXCEDRIN [ACETYLSALICYLIC ACID,CAFFEINE,SALICYLAMIDE] [Concomitant]
     Active Substance: ASPIRIN\CAFFEINE\SALICYLAMIDE

REACTIONS (1)
  - Abdominal pain upper [Recovered/Resolved]
